FAERS Safety Report 9351399 (Version 2)
Quarter: 2013Q4

REPORT INFORMATION
  Report Type: Spontaneous
  Country: FR (occurrence: FR)
  Receive Date: 20130617
  Receipt Date: 20131025
  Transmission Date: 20140711
  Serious: Yes (Death)
  Sender: FDA-Public Use
  Company Number: FR-TEVA-412564ISR

PATIENT
  Age: 72 Year
  Sex: Male

DRUGS (1)
  1. FUROSEMIDE 40 MG [Suspect]
     Dosage: 1 TABLET DAILY; TO BE CONFIRMED
     Dates: start: 201207

REACTIONS (2)
  - Death [Fatal]
  - Fatigue [Unknown]
